FAERS Safety Report 6115713-3 (Version None)
Quarter: 2009Q1

REPORT INFORMATION
  Report Type: 
  Country: None (occurrence: None)
  Receive Date: 20090313
  Receipt Date: 20090309
  Transmission Date: 20090719
  Serious: Yes (Other)
  Sender: FDA-Public Use
  Company Number: US-JNJCH-2009006629

PATIENT
  Age: 78 Year
  Sex: Female
  Weight: 71.7 kg

DRUGS (1)
  1. PURELL ORIGINAL [Suspect]
     Indication: ANTIBIOTIC PROPHYLAXIS
     Dosage: TEXT:EVERYTIME SHE WOULD USE THE BATHROOM
     Route: 061

REACTIONS (4)
  - ASTHMA [None]
  - DYSPNOEA [None]
  - PRODUCT QUALITY ISSUE [None]
  - SINUSITIS [None]
